FAERS Safety Report 6503471-X (Version None)
Quarter: 2009Q4

REPORT INFORMATION
  Report Type: 
  Country: None (occurrence: None)
  Receive Date: 20091217
  Receipt Date: 20091207
  Transmission Date: 20100525
  Serious: Yes (Other)
  Sender: FDA-Public Use
  Company Number: AR-ROCHE-674591

PATIENT
  Age: 66 Year
  Sex: Female

DRUGS (1)
  1. BEVACIZUMAB [Suspect]
     Dosage: CO-INDICATION: PROLIFERATIVE DIABETIC RETINOPATHY
     Route: 031

REACTIONS (1)
  - ENDOPHTHALMITIS [None]
